FAERS Safety Report 14811860 (Version 3)
Quarter: 2018Q3

REPORT INFORMATION
  Report Type: Report from Study
  Country: US (occurrence: US)
  Receive Date: 20180425
  Receipt Date: 20180915
  Transmission Date: 20181010
  Serious: Yes (Other)
  Sender: FDA-Public Use
  Company Number: US-AMGEN-USASL2018047318

PATIENT
  Age: 61 Year
  Sex: Male

DRUGS (2)
  1. REPATHA [Suspect]
     Active Substance: EVOLOCUMAB
     Indication: ARTERIOSCLEROSIS
     Dosage: 140 MG, Q2WK
     Route: 065
     Dates: start: 201709
  2. REPATHA [Suspect]
     Active Substance: EVOLOCUMAB
     Indication: HYPERCHOLESTEROLAEMIA
     Dosage: 140 MG, Q2WK
     Route: 065

REACTIONS (10)
  - Memory impairment [Unknown]
  - Muscular weakness [Recovering/Resolving]
  - Influenza like illness [Unknown]
  - Renal impairment [Recovering/Resolving]
  - Blood glucose increased [Unknown]
  - Nasopharyngitis [Recovering/Resolving]
  - Injection site discomfort [Unknown]
  - Fatigue [Recovering/Resolving]
  - Injection site pain [Unknown]
  - Wrong technique in product usage process [Unknown]
